FAERS Safety Report 12555527 (Version 1)
Quarter: 2016Q3

REPORT INFORMATION
  Report Type: Spontaneous
  Country: US (occurrence: None)
  Receive Date: 20160713
  Receipt Date: 20160713
  Transmission Date: 20161109
  Serious: No
  Sender: FDA-Public Use
  Company Number: None

PATIENT
  Age: 38 Year
  Sex: Female

DRUGS (2)
  1. GILENYA [Suspect]
     Active Substance: FINGOLIMOD HYDROCHLORIDE
     Indication: VERTIGO
     Route: 048
     Dates: start: 20160615
  2. NATURE-THROID [Concomitant]
     Active Substance: THYROID, PORCINE

REACTIONS (1)
  - Fall [None]

NARRATIVE: CASE EVENT DATE: 201607
